FAERS Safety Report 11533851 (Version 3)
Quarter: 2016Q1

REPORT INFORMATION
  Report Type: Report from Study
  Country: DE (occurrence: DE)
  Receive Date: 20150922
  Receipt Date: 20160308
  Transmission Date: 20160525
  Serious: Yes (Other)
  Sender: FDA-Public Use
  Company Number: DE-ROCHE-1636240

PATIENT
  Age: 44 Year
  Sex: Female

DRUGS (12)
  1. METHOTREXATE [Concomitant]
     Active Substance: METHOTREXATE
     Indication: RHEUMATOID ARTHRITIS
  2. CORTISONE [Concomitant]
     Active Substance: CORTISONE\HYDROCORTISONE
     Indication: RHEUMATOID ARTHRITIS
  3. FENTANYL. [Concomitant]
     Active Substance: FENTANYL
  4. ROACTEMRA [Suspect]
     Active Substance: TOCILIZUMAB
     Indication: RHEUMATOID ARTHRITIS
     Route: 058
     Dates: start: 20140801, end: 201601
  5. LODOTRA [Concomitant]
     Active Substance: PREDNISONE
  6. ROACTEMRA [Suspect]
     Active Substance: TOCILIZUMAB
     Route: 058
  7. QUENSYL [Concomitant]
     Active Substance: HYDROXYCHLOROQUINE
  8. LYRICA [Concomitant]
     Active Substance: PREGABALIN
  9. RAMILICH [Concomitant]
     Active Substance: RAMIPRIL
  10. NEBIVOLOL. [Concomitant]
     Active Substance: NEBIVOLOL
  11. SPIRONOLACTON [Concomitant]
     Active Substance: SPIRONOLACTONE
  12. FRUBIASE [Concomitant]

REACTIONS (5)
  - Stress fracture [Recovering/Resolving]
  - Hyperhidrosis [Recovering/Resolving]
  - Bronchitis bacterial [Recovering/Resolving]
  - Fracture delayed union [Unknown]
  - Blood triglycerides increased [Not Recovered/Not Resolved]

NARRATIVE: CASE EVENT DATE: 201601
